FAERS Safety Report 12872261 (Version 2)
Quarter: 2017Q4

REPORT INFORMATION
  Report Type: Spontaneous
  Country: US (occurrence: US)
  Receive Date: 20161021
  Receipt Date: 20171023
  Transmission Date: 20180320
  Serious: Yes (Other)
  Sender: FDA-Public Use
  Company Number: US-NAPPMUNDI-USA-2016-0133414

PATIENT
  Sex: Female

DRUGS (1)
  1. OXYCONTIN [Suspect]
     Active Substance: OXYCODONE HYDROCHLORIDE
     Indication: DRUG USE DISORDER
     Dosage: UNK
     Route: 048

REACTIONS (5)
  - Drug dependence [Recovering/Resolving]
  - Drug abuse [Recovering/Resolving]
  - Drug withdrawal syndrome [Unknown]
  - Emotional poverty [Unknown]
  - Euphoric mood [Unknown]
